FAERS Safety Report 24713164 (Version 3)
Quarter: 2025Q3

REPORT INFORMATION
  Report Type: Report from Study
  Country: CN (occurrence: CN)
  Receive Date: 20241209
  Receipt Date: 20250802
  Transmission Date: 20251020
  Serious: Yes (Other)
  Sender: ALEXION PHARMACEUTICALS
  Company Number: CN-ASTRAZENECA-202412GLO001002CN

PATIENT
  Sex: Male

DRUGS (26)
  1. ECULIZUMAB [Suspect]
     Active Substance: ECULIZUMAB
     Route: 065
     Dates: start: 20240511, end: 20240511
  2. ECULIZUMAB [Suspect]
     Active Substance: ECULIZUMAB
     Route: 065
     Dates: start: 20240518, end: 20240518
  3. ECULIZUMAB [Suspect]
     Active Substance: ECULIZUMAB
     Route: 065
     Dates: start: 20240525, end: 20240525
  4. ECULIZUMAB [Suspect]
     Active Substance: ECULIZUMAB
     Route: 065
     Dates: start: 20240601, end: 20240601
  5. ECULIZUMAB [Suspect]
     Active Substance: ECULIZUMAB
     Route: 065
     Dates: start: 20240608, end: 20240608
  6. ECULIZUMAB [Suspect]
     Active Substance: ECULIZUMAB
     Route: 065
     Dates: start: 20240623, end: 20240623
  7. ECULIZUMAB [Suspect]
     Active Substance: ECULIZUMAB
     Route: 065
     Dates: start: 20240706, end: 20240706
  8. ECULIZUMAB [Suspect]
     Active Substance: ECULIZUMAB
     Route: 065
     Dates: start: 20240720, end: 20240720
  9. ECULIZUMAB [Suspect]
     Active Substance: ECULIZUMAB
     Route: 065
     Dates: start: 20240803, end: 20240803
  10. ECULIZUMAB [Suspect]
     Active Substance: ECULIZUMAB
     Route: 065
     Dates: start: 20240817, end: 20240817
  11. ECULIZUMAB [Suspect]
     Active Substance: ECULIZUMAB
     Route: 065
     Dates: start: 20240831, end: 20240831
  12. ECULIZUMAB [Suspect]
     Active Substance: ECULIZUMAB
     Route: 065
     Dates: start: 20240915, end: 20240915
  13. ECULIZUMAB [Suspect]
     Active Substance: ECULIZUMAB
     Route: 065
     Dates: start: 20240928, end: 20240928
  14. ECULIZUMAB [Suspect]
     Active Substance: ECULIZUMAB
     Route: 065
     Dates: start: 20241013, end: 20241013
  15. ECULIZUMAB [Suspect]
     Active Substance: ECULIZUMAB
     Route: 065
     Dates: start: 20241027, end: 20241027
  16. ECULIZUMAB [Suspect]
     Active Substance: ECULIZUMAB
     Route: 065
     Dates: start: 20241110, end: 20241110
  17. ECULIZUMAB [Suspect]
     Active Substance: ECULIZUMAB
     Route: 065
     Dates: start: 20241124, end: 20241124
  18. ECULIZUMAB [Suspect]
     Active Substance: ECULIZUMAB
     Route: 065
     Dates: start: 20241208, end: 20241208
  19. ECULIZUMAB [Suspect]
     Active Substance: ECULIZUMAB
     Route: 065
     Dates: start: 20241222, end: 20241222
  20. ECULIZUMAB [Suspect]
     Active Substance: ECULIZUMAB
     Route: 065
     Dates: start: 20250104, end: 20250104
  21. ECULIZUMAB [Suspect]
     Active Substance: ECULIZUMAB
     Route: 065
     Dates: start: 20250119, end: 20250119
  22. ECULIZUMAB [Suspect]
     Active Substance: ECULIZUMAB
     Route: 065
     Dates: start: 20250201, end: 20250201
  23. ECULIZUMAB [Suspect]
     Active Substance: ECULIZUMAB
     Route: 065
     Dates: start: 20250214, end: 20250214
  24. ECULIZUMAB [Suspect]
     Active Substance: ECULIZUMAB
     Route: 065
  25. STANOZOLOL [Concomitant]
     Active Substance: STANOZOLOL
     Indication: Paroxysmal nocturnal haemoglobinuria
     Route: 065
  26. PREDNISONE ACETATE [Concomitant]
     Active Substance: PREDNISONE ACETATE
     Indication: Paroxysmal nocturnal haemoglobinuria
     Route: 065
     Dates: start: 20240906, end: 20240913

REACTIONS (1)
  - Cholestasis [Not Recovered/Not Resolved]

NARRATIVE: CASE EVENT DATE: 20240906
